FAERS Safety Report 12340263 (Version 2)
Quarter: 2016Q2

REPORT INFORMATION
  Report Type: Other
  Country: GB (occurrence: GB)
  Receive Date: 20160506
  Receipt Date: 20160506
  Transmission Date: 20160815
  Serious: Yes (Life-Threatening)
  Sender: FDA-Public Use
  Company Number: GB-CIPLA LTD.-2016GB04733

PATIENT

DRUGS (7)
  1. FLECAINIDE [Interacting]
     Active Substance: FLECAINIDE
     Indication: SUPRAVENTRICULAR TACHYCARDIA
     Dosage: UNK
     Route: 048
  2. FENTANYL. [Concomitant]
     Active Substance: FENTANYL
     Dosage: UNK
     Route: 065
  3. AMLODIPINE [Suspect]
     Active Substance: AMLODIPINE BESYLATE
     Indication: HYPERTENSION
     Dosage: UNK
     Route: 048
  4. ANTIBIOTICS NOS [Concomitant]
     Active Substance: UNSPECIFIED INGREDIENT
     Dosage: UNK
     Route: 065
  5. EPIDURAL [Concomitant]
     Dosage: UNK
     Route: 065
  6. GENERAL ANAESTHESIA [Concomitant]
     Dosage: UNK
     Route: 065
  7. PROPOFOL. [Concomitant]
     Active Substance: PROPOFOL
     Dosage: UNK
     Route: 065

REACTIONS (5)
  - Pulseless electrical activity [Recovered/Resolved]
  - Drug interaction [Unknown]
  - Heart rate decreased [Unknown]
  - Hypotension [Unknown]
  - Bradycardia [Unknown]

NARRATIVE: CASE EVENT DATE: 20160229
